FAERS Safety Report 7671062-3 (Version None)
Quarter: 2011Q3

REPORT INFORMATION
  Report Type: 
  Country: None (occurrence: None)
  Receive Date: 20110805
  Receipt Date: 20110805
  Transmission Date: 20111222
  Serious: No
  Sender: FDA-Public Use
  Company Number: None

PATIENT
  Age: 57 Year
  Sex: Male

DRUGS (7)
  1. TOPAMAX [Concomitant]
  2. REYATAZ [Concomitant]
  3. AGGRENOX [Concomitant]
  4. DILTIAZEM [Concomitant]
  5. EPZICOM [Concomitant]
  6. LEVAQUIN [Concomitant]
  7. EGRIFTA [Suspect]
     Indication: LIPODYSTROPHY ACQUIRED
     Dosage: 2MG QD SQ
     Route: 058
     Dates: start: 20110308, end: 20110720

REACTIONS (3)
  - URTICARIA [None]
  - FLUID RETENTION [None]
  - ARTHRALGIA [None]
